FAERS Safety Report 7992851-1 (Version None)
Quarter: 2011Q4

REPORT INFORMATION
  Report Type: 
  Country: None (occurrence: None)
  Receive Date: 20111219
  Receipt Date: 20111018
  Transmission Date: 20120403
  Serious: No
  Sender: FDA-Public Use
  Company Number: US-ASTRAZENECA-2011SE62718

PATIENT
  Age: 46 Year
  Sex: Male
  Weight: 79.4 kg

DRUGS (5)
  1. METOPROLOL [Concomitant]
  2. DEXALANT [Concomitant]
  3. UNKNOWN [Concomitant]
  4. CRESTOR [Suspect]
     Route: 048
  5. CRESTOR [Suspect]
     Route: 048

REACTIONS (1)
  - BLOOD ALBUMIN DECREASED [None]
